FAERS Safety Report 4758666-2 (Version None)
Quarter: 2005Q3

REPORT INFORMATION
  Report Type: 
  Country: None (occurrence: None)
  Receive Date: 20050830
  Receipt Date: 20050830
  Transmission Date: 20060218
  Serious: Yes (Death)
  Sender: FDA-Public Use
  Company Number: None

PATIENT
  Age: 74 Year
  Sex: Male
  Weight: 83.9154 kg

DRUGS (2)
  1. PAROXETINE HYDROCHLORIDE [Suspect]
     Indication: SOCIAL PROBLEM
     Dosage: 1 @ BEDTIME
     Dates: start: 20041116, end: 20041215
  2. ALLOPURINOL [Concomitant]

REACTIONS (5)
  - AGITATION [None]
  - ANXIETY [None]
  - COMPLETED SUICIDE [None]
  - CONDITION AGGRAVATED [None]
  - GUN SHOT WOUND [None]
